FAERS Safety Report 9405479 (Version 1)
Quarter: 2013Q3

REPORT INFORMATION
  Report Type: Spontaneous
  Country: DE (occurrence: DE)
  Receive Date: 20130715
  Receipt Date: 20130715
  Transmission Date: 20140515
  Serious: Yes (Other)
  Sender: FDA-Public Use
  Company Number: GER/GER/13/0031062

PATIENT
  Age: 41 Year
  Sex: Female

DRUGS (6)
  1. RAMIPRIL [Suspect]
     Indication: HYPERTENSION
     Route: 048
     Dates: start: 20070215, end: 20071001
  2. MOXONIDINE [Suspect]
     Indication: HYPERTENSION
     Route: 048
     Dates: start: 20070215, end: 20071001
  3. TORASEMIDE (TORASEMIDE) [Suspect]
     Indication: HYPERTENSION
     Route: 048
     Dates: start: 20070215, end: 20071001
  4. AMLODIPINE (AMLODIPINE) [Suspect]
     Indication: HYPERTENSION
     Route: 048
     Dates: start: 20070215, end: 20071001
  5. TORASEMIDE-CORAX [Suspect]
     Indication: HYPERTENSION
     Dates: start: 20070215, end: 20071001
  6. METOPROLOL-CORAX [Concomitant]

REACTIONS (4)
  - Caesarean section [None]
  - Breech presentation [None]
  - Premature rupture of membranes [None]
  - Exposure during pregnancy [None]
